FAERS Safety Report 9477592 (Version 1)
Quarter: 2013Q3

REPORT INFORMATION
  Report Type: Report from Study
  Country: DE (occurrence: DE)
  Receive Date: 20130827
  Receipt Date: 20130827
  Transmission Date: 20140515
  Serious: Yes (Hospitalization)
  Sender: FDA-Public Use
  Company Number: DE-BIOGENIDEC-2013BI078505

PATIENT
  Age: 44 Year
  Sex: Male

DRUGS (2)
  1. TYSABRI [Suspect]
     Indication: RELAPSING-REMITTING MULTIPLE SCLEROSIS
     Route: 042
     Dates: start: 20110802
  2. FAMPYRA [Concomitant]
     Indication: MULTIPLE SCLEROSIS
     Dates: start: 20120101

REACTIONS (2)
  - Urinary tract infection [Recovered/Resolved]
  - Epididymitis [Recovered/Resolved]
